FAERS Safety Report 5535402-3 (Version None)
Quarter: 2007Q4

REPORT INFORMATION
  Report Type: 
  Country: None (occurrence: None)
  Receive Date: 20071206
  Receipt Date: 20071123
  Transmission Date: 20080405
  Serious: Yes (Life-Threatening, Hospitalization)
  Sender: FDA-Public Use
  Company Number: PL-PFIZER INC-2007098800

PATIENT
  Sex: Male
  Weight: 67 kg

DRUGS (37)
  1. SU-011,248 [Suspect]
     Indication: METASTATIC RENAL CELL CARCINOMA
     Route: 048
     Dates: start: 20070724, end: 20070810
  2. OMNIC [Concomitant]
     Route: 048
     Dates: start: 20050101, end: 20070814
  3. FUROSEMIDE [Concomitant]
     Dates: start: 20050101, end: 20070909
  4. FUROSEMIDE [Concomitant]
     Dates: start: 20050101, end: 20070909
  5. MILURIT [Concomitant]
     Route: 048
     Dates: start: 20050101, end: 20070830
  6. MILURIT [Concomitant]
     Route: 048
     Dates: start: 20050101, end: 20070830
  7. DIAPREL [Concomitant]
     Route: 048
     Dates: start: 20050101, end: 20070830
  8. DIAPREL [Concomitant]
     Route: 048
     Dates: start: 20050101, end: 20070830
  9. METOCARD [Concomitant]
     Route: 048
     Dates: start: 20050101, end: 20070902
  10. METOCARD [Concomitant]
     Route: 048
     Dates: start: 20050101, end: 20070902
  11. HEMOFER [Concomitant]
     Route: 048
     Dates: start: 20070101, end: 20070816
  12. HEMOFER [Concomitant]
     Route: 048
     Dates: start: 20070101, end: 20070816
  13. KALDYUM [Concomitant]
     Route: 048
     Dates: start: 20050101, end: 20070830
  14. KALDYUM [Concomitant]
     Route: 048
     Dates: start: 20050101, end: 20070830
  15. SPIRONOL [Concomitant]
     Route: 048
     Dates: start: 20050101, end: 20070830
  16. SPIRONOL [Concomitant]
     Route: 048
     Dates: start: 20050101, end: 20070830
  17. LOTENSIN [Concomitant]
     Route: 048
     Dates: start: 20070101, end: 20070902
  18. LOTENSIN [Concomitant]
     Route: 048
     Dates: start: 20070101, end: 20070902
  19. SODIUM CHLORIDE [Concomitant]
     Route: 042
     Dates: start: 20070810, end: 20070911
  20. SODIUM CHLORIDE [Concomitant]
     Dates: start: 20070810, end: 20070911
  21. MONONIT [Concomitant]
     Route: 048
     Dates: start: 20070810, end: 20070902
  22. MONONIT [Concomitant]
     Route: 048
     Dates: start: 20070810, end: 20070902
  23. BLOOD CELLS, PACKED HUMAN [Concomitant]
     Route: 042
     Dates: start: 20070810, end: 20070812
  24. BLOOD CELLS, PACKED HUMAN [Concomitant]
     Dates: start: 20070810, end: 20070812
  25. NITROGLYCERIN [Concomitant]
     Route: 060
     Dates: start: 20070828, end: 20070902
  26. NITROGLYCERIN [Concomitant]
     Dates: start: 20070828, end: 20070902
  27. DURAGESIC-100 [Concomitant]
     Route: 062
     Dates: start: 20070902, end: 20070911
  28. DURAGESIC-100 [Concomitant]
     Dates: start: 20070902, end: 20070911
  29. OMEPRAZOLE [Concomitant]
     Dates: start: 20070903, end: 20070911
  30. OMEPRAZOLE [Concomitant]
     Dates: start: 20070903, end: 20070911
  31. DOPAMINE HCL [Concomitant]
     Route: 042
     Dates: start: 20070910, end: 20070911
  32. DOPAMINE HCL [Concomitant]
     Dates: start: 20070910, end: 20070911
  33. MORPHINE [Concomitant]
     Route: 058
     Dates: start: 20070905, end: 20070911
  34. MORPHINE [Concomitant]
     Dates: start: 20070905, end: 20070911
  35. METRONIDAZOLE [Concomitant]
     Route: 042
  36. METRONIDAZOLE [Concomitant]
  37. CLEXANE [Concomitant]
     Route: 058

REACTIONS (3)
  - ANAEMIA [None]
  - CORONARY ARTERY DISEASE [None]
  - RENAL FAILURE [None]
